FAERS Safety Report 9435749 (Version 1)
Quarter: 2013Q3

REPORT INFORMATION
  Report Type: Spontaneous
  Country: QA (occurrence: QA)
  Receive Date: 20130801
  Receipt Date: 20130801
  Transmission Date: 20140515
  Serious: Yes (Disabling, Other)
  Sender: FDA-Public Use
  Company Number: QA-ROCHE-1255407

PATIENT
  Age: 49 Year
  Sex: Female
  Weight: 130 kg

DRUGS (2)
  1. XOLAIR [Suspect]
     Indication: ASTHMA
     Route: 058
     Dates: start: 20110701, end: 20130728
  2. SERETIDE [Concomitant]
     Indication: ASTHMA

REACTIONS (1)
  - Thyroid cancer [Not Recovered/Not Resolved]
